FAERS Safety Report 4810302-2 (Version None)
Quarter: 2005Q4

REPORT INFORMATION
  Report Type: 
  Country: None (occurrence: None)
  Receive Date: 20051025
  Receipt Date: 20051025
  Transmission Date: 20060501
  Serious: Yes (Other)
  Sender: FDA-Public Use
  Company Number: None

PATIENT
  Age: 46 Year
  Sex: Male
  Weight: 98.4 kg

DRUGS (17)
  1. CLINDAMYCIN [Suspect]
  2. OMEPRAZOLE [Concomitant]
  3. FELODIPINE [Concomitant]
  4. CLONIDINE HCL [Concomitant]
  5. METFORMIN HCL [Concomitant]
  6. BUPROPION HCL [Concomitant]
  7. OLANZAPINE [Concomitant]
  8. LACTULOSE [Concomitant]
  9. METRONIDAZOLE [Concomitant]
  10. SPIRONOLACTONE [Concomitant]
  11. IBUPROFEN [Concomitant]
  12. FLUNISOLIDE [Concomitant]
  13. QUETIAPINE FUMARATE [Concomitant]
  14. HYDROXYZINE PAMOATE [Concomitant]
  15. UREA [Concomitant]
  16. ALBUTEROL [Concomitant]
  17. HEMORRHOIDAL/HC [Concomitant]

REACTIONS (1)
  - RASH [None]
